FAERS Safety Report 9366418 (Version 2)
Quarter: 2013Q3

REPORT INFORMATION
  Report Type: Spontaneous
  Country: US (occurrence: None)
  Receive Date: 20130620
  Receipt Date: 20130712
  Transmission Date: 20140515
  Serious: Yes (Hospitalization)
  Sender: FDA-Public Use
  Company Number: US-000725

PATIENT
  Sex: Female

DRUGS (1)
  1. GATTEX [Suspect]
     Indication: SHORT-BOWEL SYNDROME
     Dosage: 0.4 ML, STREN/VOLUM: 0.4 ML, DAILY SUBCUTANEOUS
     Route: 058
     Dates: start: 2013

REACTIONS (2)
  - Blood potassium increased [None]
  - Central venous catheterisation [None]
